FAERS Safety Report 10448799 (Version 3)
Quarter: 2014Q4

REPORT INFORMATION
  Report Type: Spontaneous
  Country: JP (occurrence: JP)
  Receive Date: 20140912
  Receipt Date: 20141212
  Transmission Date: 20150528
  Serious: Yes (Other)
  Sender: FDA-Public Use
  Company Number: JP-AMGEN-JPNSP2014069081

PATIENT
  Age: 69 Year
  Sex: Female

DRUGS (14)
  1. ALFAROL [Concomitant]
     Active Substance: ALFACALCIDOL
     Dosage: 1 MUG, QD, AFTER BREAKFAST
     Route: 048
  2. NEOSTELIN GREEN [Concomitant]
     Dosage: 4 DF, QD
     Route: 065
  3. URSO [Concomitant]
     Active Substance: URSODIOL
     Dosage: 200 MG, BID, AFTER BREAKFAST AND DINNER
     Route: 048
  4. IMURAN [Concomitant]
     Active Substance: AZATHIOPRINE
     Dosage: 50 MG, QD, AFTER BREAKFAST
     Route: 048
  5. UBRETID [Concomitant]
     Active Substance: DISTIGMINE BROMIDE
     Dosage: 5 MG, QD, AFTER BREAKFAST
     Route: 048
  6. ALDACTONE [Concomitant]
     Active Substance: SPIRONOLACTONE
     Dosage: 25 MG, QD, AFTER BREAKFAST
     Route: 048
  7. PARIET [Concomitant]
     Active Substance: RABEPRAZOLE SODIUM
     Dosage: 10 MG, BID, AFTER BREAKFAST AND DINNER
     Route: 048
  8. EBRANTIL                           /00631801/ [Concomitant]
     Active Substance: URAPIDIL
     Dosage: 15 MG, BID, AFTER BREAKFAST AND DINNER
     Route: 048
  9. BAKTAR [Concomitant]
     Active Substance: SULFAMETHOXAZOLE\TRIMETHOPRIM
     Dosage: 1 DF, QD, AFTER BREAKFAST, MONDAY, WEDNESDAY, FRIDAY
     Route: 048
  10. PREDONINE [Concomitant]
     Active Substance: PREDNISOLONE\PREDNISOLONE ACETATE\PREDNISOLONE SODIUM SUCCINATE
     Dosage: 5 MG, QD, AFTER BREAKFAST
     Route: 048
  11. PREDNISOLONE. [Concomitant]
     Active Substance: PREDNISOLONE
     Dosage: 4 MG, QD, AFTER BREAKFAST
     Route: 048
  12. LEVOTHYROXINE NA [Concomitant]
     Dosage: 75 MUG, QD, AFTER BREAKFAST
     Route: 048
  13. BERASUS [Concomitant]
     Active Substance: BERAPROST SODIUM
     Dosage: 60 MUG, BID, AFTER BREAKFAST AND DINNER
     Route: 048
  14. PRALIA [Suspect]
     Active Substance: DENOSUMAB
     Indication: OSTEOPOROSIS
     Dosage: 60 MG, TWICE
     Route: 058
     Dates: start: 20130725

REACTIONS (1)
  - Osteonecrosis of jaw [Not Recovered/Not Resolved]

NARRATIVE: CASE EVENT DATE: 20140708
